FAERS Safety Report 6293644-6 (Version None)
Quarter: 2009Q3

REPORT INFORMATION
  Report Type: 
  Country: None (occurrence: None)
  Receive Date: 20090803
  Receipt Date: 20090727
  Transmission Date: 20100115
  Serious: Yes (Other)
  Sender: FDA-Public Use
  Company Number: PHHY2009BR31174

PATIENT
  Sex: Male

DRUGS (2)
  1. EXELON [Suspect]
     Dosage: 18MG/10CM2 PATCH, UNK
     Route: 062
  2. EXELON [Suspect]
     Dosage: 9MG/5CM2 PATCH, UNK
     Route: 062

REACTIONS (2)
  - DELIRIUM [None]
  - HALLUCINATION [None]
